FAERS Safety Report 5365758-6 (Version None)
Quarter: 2007Q2

REPORT INFORMATION
  Report Type: 
  Country: None (occurrence: None)
  Receive Date: 20070621
  Receipt Date: 20070611
  Transmission Date: 20071010
  Serious: Yes (Hospitalization)
  Sender: FDA-Public Use
  Company Number: US-SANOFI-SYNTHELABO-A03200703759

PATIENT
  Sex: Female

DRUGS (6)
  1. ALBUTEROL [Concomitant]
     Dosage: UNK
     Route: 065
  2. VYTORIN [Concomitant]
     Dosage: 10/80 MG QD
     Route: 065
  3. TOPROL-XL [Concomitant]
     Route: 065
  4. DIOVAN [Concomitant]
     Route: 065
  5. COUMADIN [Concomitant]
     Route: 065
  6. PLAVIX [Suspect]
     Indication: DRUG USE FOR UNKNOWN INDICATION
     Route: 048
     Dates: start: 20060101

REACTIONS (1)
  - SURGERY [None]
